FAERS Safety Report 9226735 (Version 1)
Quarter: 2013Q2

REPORT INFORMATION
  Report Type: Spontaneous
  Country: GB (occurrence: GB)
  Receive Date: 20130412
  Receipt Date: 20130412
  Transmission Date: 20140414
  Serious: Yes (Other)
  Sender: FDA-Public Use
  Company Number: GB-009507513-1304GBR004873

PATIENT
  Age: 63 Year
  Sex: Female
  Weight: 115.6 kg

DRUGS (11)
  1. ADRONAT [Suspect]
     Dosage: UNK
     Route: 048
     Dates: start: 20121205
  2. ADCAL (CALCIUM CARBONATE) [Concomitant]
     Dosage: UNK
     Dates: start: 20130318
  3. BISOPROLOL [Concomitant]
     Dosage: UNK
     Dates: start: 20121116
  4. FOLIC ACID [Concomitant]
     Dosage: UNK
     Dates: start: 20121116, end: 20130111
  5. FUROSEMIDE [Concomitant]
     Dosage: UNK
     Dates: start: 20121123, end: 20130322
  6. LOSARTAN POTASSIUM [Concomitant]
     Dosage: UNK
     Dates: start: 20121221, end: 20130311
  7. METHOTREXATE [Concomitant]
     Dosage: UNK
     Dates: start: 20120703
  8. NITROFURANTOIN [Concomitant]
     Dosage: UNK
     Dates: start: 20130207, end: 20130212
  9. OMEPRAZOLE [Concomitant]
     Dosage: UNK
     Dates: start: 20121116
  10. PREDNISOLONE [Concomitant]
     Dosage: UNK
     Dates: start: 20121102
  11. SIMVASTATIN [Concomitant]
     Dosage: UNK
     Dates: start: 20121205

REACTIONS (1)
  - Osteonecrosis [Recovering/Resolving]
